FAERS Safety Report 12072784 (Version 2)
Quarter: 2016Q2

REPORT INFORMATION
  Report Type: Spontaneous
  Country: US (occurrence: US)
  Receive Date: 20160212
  Receipt Date: 20160601
  Transmission Date: 20160815
  Serious: No
  Sender: FDA-Public Use
  Company Number: US-PFIZER INC-2016075532

PATIENT
  Age: 67 Year
  Sex: Male

DRUGS (1)
  1. PRISTIQ EXTENDED-RELEASE [Suspect]
     Active Substance: DESVENLAFAXINE SUCCINATE
     Indication: VERTIGO
     Dosage: 50 MG, UNK

REACTIONS (2)
  - Drug effect incomplete [Not Recovered/Not Resolved]
  - Drug dose omission [Not Recovered/Not Resolved]
